FAERS Safety Report 9238546 (Version 1)
Quarter: 2013Q2

REPORT INFORMATION
  Report Type: Spontaneous
  Country: US (occurrence: None)
  Receive Date: 20130417
  Receipt Date: 20130417
  Transmission Date: 20140414
  Serious: Yes (Other)
  Sender: FDA-Public Use
  Company Number: None

PATIENT
  Age: 36 Year
  Sex: Female
  Weight: 117.94 kg

DRUGS (1)
  1. CYMBALTA [Suspect]

REACTIONS (15)
  - Drug withdrawal syndrome [None]
  - Dizziness [None]
  - Nausea [None]
  - Vomiting [None]
  - Headache [None]
  - Muscle tightness [None]
  - Jaw disorder [None]
  - Food craving [None]
  - Insomnia [None]
  - Fatigue [None]
  - Abnormal dreams [None]
  - Nightmare [None]
  - Hyperhidrosis [None]
  - Feeling of body temperature change [None]
  - Paraesthesia [None]
